FAERS Safety Report 20629904 (Version 1)
Quarter: 2022Q1

REPORT INFORMATION
  Report Type: Spontaneous
  Country: CH (occurrence: CH)
  Receive Date: 20220324
  Receipt Date: 20220324
  Transmission Date: 20220424
  Serious: Yes (Other)
  Sender: FDA-Public Use
  Company Number: CH-SA-2022SA092907

PATIENT
  Age: 37 Year
  Sex: Male

DRUGS (17)
  1. ETHAMBUTOL [Suspect]
     Active Substance: ETHAMBUTOL HYDROCHLORIDE
     Indication: Serpiginous choroiditis
  2. PYRAZINAMIDE [Suspect]
     Active Substance: PYRAZINAMIDE
     Indication: Serpiginous choroiditis
  3. PYRAZINAMIDE [Suspect]
     Active Substance: PYRAZINAMIDE
     Dosage: UNK
  4. RIFAMPIN [Suspect]
     Active Substance: RIFAMPIN
     Indication: Serpiginous choroiditis
  5. RIFAMPIN [Suspect]
     Active Substance: RIFAMPIN
     Dosage: UNK
  6. ISONIAZID [Suspect]
     Active Substance: ISONIAZID
     Indication: Serpiginous choroiditis
  7. ISONIAZID [Suspect]
     Active Substance: ISONIAZID
     Dosage: UNK
  8. PREDNISONE [Concomitant]
     Active Substance: PREDNISONE
     Indication: Serpiginous choroiditis
     Route: 062
  9. PREDNISONE [Concomitant]
     Active Substance: PREDNISONE
     Dosage: 100 MG, QD (HIGH)
     Route: 048
  10. PREDNISONE [Concomitant]
     Active Substance: PREDNISONE
     Dosage: 4 MG, QD
     Route: 048
  11. PREDNISONE [Concomitant]
     Active Substance: PREDNISONE
     Dosage: 80 MG, QD
  12. PREDNISONE [Concomitant]
     Active Substance: PREDNISONE
     Dosage: 100 MG, QD
  13. PREDNISONE [Concomitant]
     Active Substance: PREDNISONE
     Dosage: 60 MG, QD
  14. PREDNISONE [Concomitant]
     Active Substance: PREDNISONE
     Dosage: 35 MG, QD
  15. PREDNISONE [Concomitant]
     Active Substance: PREDNISONE
     Dosage: 15 MG, QD
  16. PREDNISONE [Concomitant]
     Active Substance: PREDNISONE
     Dosage: 10 MG, QD
  17. PREDNISONE [Concomitant]
     Active Substance: PREDNISONE
     Dosage: 7.5 MG, QD

REACTIONS (7)
  - Serpiginous choroiditis [Recovered/Resolved]
  - Condition aggravated [Recovered/Resolved]
  - Paradoxical drug reaction [Recovered/Resolved]
  - Jarisch-Herxheimer reaction [Recovered/Resolved]
  - Eye inflammation [Recovered/Resolved]
  - Visual field defect [Recovered/Resolved]
  - Chorioretinal atrophy [Recovered/Resolved]
